FAERS Safety Report 7761466-2 (Version None)
Quarter: 2011Q3

REPORT INFORMATION
  Report Type: 
  Country: None (occurrence: None)
  Receive Date: 20110920
  Receipt Date: 20110913
  Transmission Date: 20111222
  Serious: Yes (Disabling, Other)
  Sender: FDA-Public Use
  Company Number: AU-B.I. PHARMACEUTICALS,INC./RIDGEFIELD-2011-AU-01326AU

PATIENT
  Sex: Male

DRUGS (1)
  1. PRADAXA [Suspect]
     Dates: start: 20080101

REACTIONS (2)
  - GLIOSARCOMA [None]
  - HAEMORRHAGE [None]
